FAERS Safety Report 4504728-4 (Version None)
Quarter: 2004Q4

REPORT INFORMATION
  Report Type: 
  Country: None (occurrence: None)
  Receive Date: 20041118
  Receipt Date: 20030605
  Transmission Date: 20050328
  Serious: Yes (Disabling)
  Sender: FDA-Public Use
  Company Number: US-MERCK-0306USA00843

PATIENT
  Age: 50 Year
  Sex: Female
  Weight: 66 kg

DRUGS (10)
  1. VIOXX [Suspect]
     Route: 048
     Dates: start: 20010101, end: 20010801
  2. VITAMINS (UNSPECIFIED) [Concomitant]
     Route: 065
  3. VERAPAMIL [Concomitant]
     Route: 065
     Dates: end: 20010423
  4. HYDROCHLOROTHIAZIDE [Concomitant]
     Route: 065
     Dates: end: 20010423
  5. EFFEXOR XR [Concomitant]
     Route: 065
     Dates: end: 20010801
  6. PREMARIN [Concomitant]
     Route: 065
  7. MICARDIS [Concomitant]
     Route: 065
     Dates: start: 20010423
  8. VERAPAMIL HYDROCHLORIDE [Concomitant]
     Route: 065
     Dates: start: 20010620
  9. ULTRAM [Concomitant]
     Route: 065
  10. ATARAX [Concomitant]
     Route: 065

REACTIONS (20)
  - ANAEMIA [None]
  - ARRHYTHMIA [None]
  - BLOOD PRESSURE INCREASED [None]
  - BRONCHITIS [None]
  - CARPAL TUNNEL SYNDROME [None]
  - DYSPNOEA EXERTIONAL [None]
  - EPICONDYLITIS [None]
  - FALL [None]
  - FIBULA FRACTURE [None]
  - MONONEUROPATHY [None]
  - MUSCULOSKELETAL STIFFNESS [None]
  - OEDEMA [None]
  - OSTEOCHONDROSIS [None]
  - PALPITATIONS [None]
  - POLYTRAUMATISM [None]
  - REFLEX SYMPATHETIC DYSTROPHY [None]
  - RHINITIS ALLERGIC [None]
  - SINUS HEADACHE [None]
  - TACHYCARDIA [None]
  - UPPER RESPIRATORY TRACT INFECTION [None]
